FAERS Safety Report 7242234-7 (Version None)
Quarter: 2011Q1

REPORT INFORMATION
  Report Type: 
  Country: None (occurrence: None)
  Receive Date: 20110124
  Receipt Date: 20110111
  Transmission Date: 20110831
  Serious: Yes (Hospitalization)
  Sender: FDA-Public Use
  Company Number: FR-MERCK-1101FRA00075

PATIENT
  Age: 70 Year
  Sex: Female
  Weight: 94 kg

DRUGS (4)
  1. ACTOS [Concomitant]
     Indication: TYPE 2 DIABETES MELLITUS
     Route: 048
     Dates: start: 20100312, end: 20100810
  2. JANUMET [Suspect]
     Indication: TYPE 2 DIABETES MELLITUS
     Route: 048
     Dates: start: 20091014
  3. ACTOS [Concomitant]
     Route: 048
     Dates: start: 20101119
  4. ACTOS [Concomitant]
     Route: 048
     Dates: start: 20100811, end: 20101118

REACTIONS (1)
  - DYSARTHRIA [None]
